FAERS Safety Report 18205330 (Version 2)
Quarter: 2020Q3

REPORT INFORMATION
  Report Type: Spontaneous
  Country: US (occurrence: US)
  Receive Date: 20200828
  Receipt Date: 20200905
  Transmission Date: 20201103
  Serious: No
  Sender: FDA-Public Use
  Company Number: US-UNITED THERAPEUTICS-UNT-2020-012739

PATIENT
  Age: 46 Year
  Sex: Female
  Weight: 113.38 kg

DRUGS (3)
  1. REMODULIN [Suspect]
     Active Substance: TREPROSTINIL
     Indication: PULMONARY ARTERIAL HYPERTENSION
     Dosage: UNK
     Route: 058
     Dates: start: 20200625
  2. REMODULIN [Suspect]
     Active Substance: TREPROSTINIL
     Dosage: 0.00375 ?G/KG, CONTINUING
     Route: 058
     Dates: end: 20200822
  3. SALONPAS (MENTHOL\METHYL SALICYLATE) [Suspect]
     Active Substance: MENTHOL\METHYL SALICYLATE
     Indication: PRODUCT USED FOR UNKNOWN INDICATION
     Dosage: UNK
     Route: 065

REACTIONS (7)
  - Feeling abnormal [Unknown]
  - Infusion site vesicles [Unknown]
  - Dyspnoea [Unknown]
  - Infusion site erythema [Unknown]
  - Therapy cessation [Unknown]
  - Infusion site pain [Unknown]
  - Infusion site rash [Unknown]

NARRATIVE: CASE EVENT DATE: 2020
